FAERS Safety Report 6699811-1 (Version None)
Quarter: 2010Q2

REPORT INFORMATION
  Report Type: 
  Country: None (occurrence: None)
  Receive Date: 20100428
  Receipt Date: 20090528
  Transmission Date: 20101027
  Serious: No
  Sender: FDA-Public Use
  Company Number: A0829531A

PATIENT
  Age: 3 Year
  Sex: Female
  Weight: 11 kg

DRUGS (1)
  1. LUXIQ [Suspect]
     Indication: ALOPECIA
     Dosage: 0PCT TWICE PER DAY
     Route: 061
     Dates: start: 20090401, end: 20090501

REACTIONS (4)
  - DRY SKIN [None]
  - OFF LABEL USE [None]
  - SKIN EXFOLIATION [None]
  - SKIN FISSURES [None]
